FAERS Safety Report 8039759-3 (Version None)
Quarter: 2012Q1

REPORT INFORMATION
  Report Type: 
  Country: None (occurrence: None)
  Receive Date: 20120111
  Receipt Date: 20111219
  Transmission Date: 20120608
  Serious: Yes (Hospitalization)
  Sender: FDA-Public Use
  Company Number: US-AMGEN-USASP2011058844

PATIENT
  Age: 58 Year
  Sex: Female
  Weight: 142.4 kg

DRUGS (7)
  1. METHOTREXATE [Concomitant]
     Dosage: 12.5 MG, QWK
     Dates: start: 20080228, end: 20110816
  2. METFORMIN HCL [Concomitant]
     Dosage: UNK
  3. SYNTHROID [Concomitant]
     Dosage: UNK
  4. ENBREL [Suspect]
     Indication: RHEUMATOID ARTHRITIS
     Dosage: 50 MG, QWK
     Route: 058
     Dates: start: 20110114, end: 20110816
  5. CELEBREX [Concomitant]
     Dosage: 200 MG, BID
     Dates: start: 20110101
  6. FOLIC ACID [Concomitant]
     Dosage: 1 MG, QD
     Dates: start: 20080228, end: 20110816
  7. DIGOXIN [Concomitant]
     Dosage: UNK

REACTIONS (1)
  - ARTHRITIS BACTERIAL [None]
